FAERS Safety Report 6169049-5 (Version None)
Quarter: 2009Q2

REPORT INFORMATION
  Report Type: 
  Country: None (occurrence: None)
  Receive Date: 20090427
  Receipt Date: 20090416
  Transmission Date: 20091009
  Serious: Yes (Other)
  Sender: FDA-Public Use
  Company Number: US-PFIZER INC-2009200355

PATIENT
  Sex: Male
  Weight: 90.703 kg

DRUGS (5)
  1. SUNITINIB MALATE [Suspect]
     Indication: RENAL CANCER
     Dosage: 50 MG, 1X/DAY
     Dates: start: 20080101
  2. AMLODIPINE [Concomitant]
     Dosage: UNK
  3. CARVEDILOL [Concomitant]
     Dosage: UNK
  4. DIGOXIN [Concomitant]
     Dosage: UNK
  5. ACETYLSALICYLIC ACID [Concomitant]
     Dosage: UNK

REACTIONS (1)
  - BLOOD PRESSURE INCREASED [None]
